FAERS Safety Report 24857386 (Version 2)
Quarter: 2025Q1

REPORT INFORMATION
  Report Type: Spontaneous
  Country: US (occurrence: US)
  Receive Date: 20250117
  Receipt Date: 20250220
  Transmission Date: 20250408
  Serious: No
  Sender: ROCHE
  Company Number: US-ROCHE-10000179859

PATIENT
  Age: 66 Year
  Sex: Male

DRUGS (1)
  1. ENSPRYNG [Suspect]
     Active Substance: SATRALIZUMAB-MWGE
     Indication: Product used for unknown indication
     Route: 065
     Dates: start: 202010

REACTIONS (3)
  - Gait disturbance [Unknown]
  - Discomfort [Unknown]
  - Hypoaesthesia [Unknown]
